FAERS Safety Report 4581437-7 (Version None)
Quarter: 2005Q1

REPORT INFORMATION
  Report Type: 
  Country: None (occurrence: None)
  Receive Date: 20050214
  Receipt Date: 20041020
  Transmission Date: 20050727
  Serious: No
  Sender: FDA-Public Use
  Company Number: S2004US13081

PATIENT
  Age: 47 Year
  Sex: Female

DRUGS (4)
  1. LAMICTAL [Suspect]
     Route: 048
  2. PHENOBARBITAL TAB [Suspect]
     Route: 065
  3. TEGRETOL [Suspect]
     Route: 065
  4. MYSOLINE [Suspect]
     Dosage: 250MG UNKNOWN
     Route: 065

REACTIONS (1)
  - DRUG INEFFECTIVE [None]
